FAERS Safety Report 8497932-4 (Version None)
Quarter: 2012Q3

REPORT INFORMATION
  Report Type: 
  Country: None (occurrence: None)
  Receive Date: 20120709
  Receipt Date: 20120615
  Transmission Date: 20120928
  Serious: No
  Sender: FDA-Public Use
  Company Number: US-AMGEN-USASP2012037467

PATIENT
  Age: 38 Year
  Sex: Female

DRUGS (1)
  1. ENBREL [Suspect]
     Indication: PSORIATIC ARTHROPATHY
     Dosage: 50 MG, QWK
     Dates: start: 20090629

REACTIONS (22)
  - SWELLING [None]
  - BLOODY DISCHARGE [None]
  - NAUSEA [None]
  - ARTHROPOD BITE [None]
  - SWELLING FACE [None]
  - CHILLS [None]
  - HEADACHE [None]
  - DYSPNOEA [None]
  - MALAISE [None]
  - ARTHRALGIA [None]
  - DIARRHOEA [None]
  - DYSPEPSIA [None]
  - ERUCTATION [None]
  - INFLUENZA [None]
  - SUBCUTANEOUS ABSCESS [None]
  - INJECTION SITE HAEMATOMA [None]
  - PURULENT DISCHARGE [None]
  - ABDOMINAL DISTENSION [None]
  - SOMNOLENCE [None]
  - ERYTHEMA [None]
  - FEELING HOT [None]
  - INDURATION [None]
